FAERS Safety Report 8669505 (Version 2)
Quarter: 2012Q4

REPORT INFORMATION
  Report Type: 
  Country: US (occurrence: US)
  Receive Date: 20120718
  Receipt Date: 20120907
  Transmission Date: 20130627
  Serious: Yes (Hospitalization)
  Sender: FDA-Public Use
  Company Number: US-BRISTOL-MYERS SQUIBB COMPANY-16707325

PATIENT
  Age: 60 Year
  Sex: Male

DRUGS (1)
  1. ORENCIA [Suspect]
     Indication: RHEUMATOID ARTHRITIS
     Dosage: Duration:5 yrs
3vials 10mg per mg for a 750mg tot dose
recent dose 30May12
     Route: 042
     Dates: start: 20060623, end: 20120620

REACTIONS (2)
  - Rash [Recovered/Resolved]
  - Musculoskeletal stiffness [Unknown]
